FAERS Safety Report 15997036 (Version 3)
Quarter: 2019Q1

REPORT INFORMATION
  Report Type: Report from Study
  Country: CA (occurrence: CA)
  Receive Date: 20190222
  Receipt Date: 20190305
  Transmission Date: 20190418
  Serious: Yes (Hospitalization, Other)
  Sender: FDA-Public Use
  Company Number: CA-GLAXOSMITHKLINE-CA2018GSK150080

PATIENT
  Age: 92 Year
  Sex: Female

DRUGS (2)
  1. MEPOLIZUMAB [Suspect]
     Active Substance: MEPOLIZUMAB
     Indication: ASTHMA
     Dosage: 100 MG, Z,(MONTHLY)
     Route: 042
     Dates: start: 20180522
  2. SALBUTAMOL [Suspect]
     Active Substance: ALBUTEROL
     Indication: PRODUCT USED FOR UNKNOWN INDICATION
     Dosage: 100 UNK, PRN

REACTIONS (3)
  - Blood count abnormal [Unknown]
  - Pneumonia [Unknown]
  - Product dose omission [Unknown]

NARRATIVE: CASE EVENT DATE: 20180523
